FAERS Safety Report 6685943-0 (Version None)
Quarter: 2010Q2

REPORT INFORMATION
  Report Type: 
  Country: None (occurrence: None)
  Receive Date: 20100419
  Receipt Date: 20100406
  Transmission Date: 20101027
  Serious: Yes (Other)
  Sender: FDA-Public Use
  Company Number: PHEH2010US03306

PATIENT
  Age: 41 Year
  Sex: Male

DRUGS (3)
  1. ZOMETA [Suspect]
     Indication: METASTASES TO BONE
     Dosage: 4 MG, QMO
     Route: 042
  2. STEROIDS NOS [Concomitant]
  3. SUTENT [Concomitant]
     Dosage: UNK

REACTIONS (1)
  - OSTEONECROSIS [None]
